FAERS Safety Report 22659410 (Version 1)
Quarter: 2023Q2

REPORT INFORMATION
  Report Type: Report from Study
  Country: GB (occurrence: GB)
  Receive Date: 20230630
  Receipt Date: 20230630
  Transmission Date: 20230722
  Serious: Yes (Other)
  Sender: FDA-Public Use
  Company Number: GB-JNJFOC-20230659974

PATIENT

DRUGS (5)
  1. DARATUMUMAB [Suspect]
     Active Substance: DARATUMUMAB
     Indication: Plasma cell myeloma
     Route: 042
  2. VELCADE [Suspect]
     Active Substance: BORTEZOMIB
     Indication: Plasma cell myeloma
     Route: 065
  3. CYCLOPHOSPHAMIDE [Suspect]
     Active Substance: CYCLOPHOSPHAMIDE
     Indication: Plasma cell myeloma
     Route: 065
  4. LENALIDOMIDE [Suspect]
     Active Substance: LENALIDOMIDE
     Indication: Plasma cell myeloma
     Route: 065
  5. DEXAMETHASONE [Suspect]
     Active Substance: DEXAMETHASONE
     Indication: Plasma cell myeloma
     Route: 065

REACTIONS (21)
  - Thrombocytopenia [Unknown]
  - Neutropenia [Unknown]
  - Diarrhoea [Unknown]
  - Vomiting [Unknown]
  - Musculoskeletal pain [Unknown]
  - Liver disorder [Unknown]
  - Renal disorder [Unknown]
  - Neuropathy peripheral [Unknown]
  - Anaemia [Unknown]
  - Respiratory tract infection [Unknown]
  - Constipation [Unknown]
  - Nausea [Unknown]
  - Muscle spasms [Unknown]
  - Pyrexia [Unknown]
  - Influenza like illness [Unknown]
  - Oedema [Unknown]
  - Mood altered [Unknown]
  - Rash [Unknown]
  - Pain [Unknown]
  - Infection [Unknown]
  - Fatigue [Unknown]
